FAERS Safety Report 4756837-2 (Version None)
Quarter: 2005Q3

REPORT INFORMATION
  Report Type: 
  Country: None (occurrence: None)
  Receive Date: 20050830
  Receipt Date: 20050822
  Transmission Date: 20060218
  Serious: Yes (Life-Threatening, Hospitalization)
  Sender: FDA-Public Use
  Company Number: FR-JNJFOC-20050600075

PATIENT
  Sex: Male
  Weight: 46.6 kg

DRUGS (6)
  1. HALDOL [Suspect]
     Dosage: 2MG/2ML SOLUTION
     Route: 048
     Dates: start: 20050518, end: 20050527
  2. RIFATER [Suspect]
     Route: 048
  3. RIFATER [Suspect]
     Route: 048
  4. RIFATER [Suspect]
     Indication: TUBERCULOSIS
     Dosage: 1 DOSE = 1 TABLET
     Route: 048
  5. PANTOPRAZOLE SODIUM [Concomitant]
     Dates: start: 20050514, end: 20050525
  6. DEXAMBUTOL [Concomitant]

REACTIONS (1)
  - AUTOIMMUNE THROMBOCYTOPENIA [None]
